FAERS Safety Report 5948810-3 (Version None)
Quarter: 2008Q4

REPORT INFORMATION
  Report Type: 
  Country: None (occurrence: None)
  Receive Date: 20081021
  Receipt Date: 20080313
  Transmission Date: 20090506
  Serious: Yes (Other)
  Sender: FDA-Public Use
  Company Number: HQWYE201616JUL04

PATIENT
  Age: 66 Year
  Sex: Female

DRUGS (5)
  1. PREMARIN [Suspect]
     Dosage: ORAL
     Route: 048
     Dates: start: 19950101, end: 19990101
  2. PREMPRO [Suspect]
     Dosage: ORAL
     Route: 048
  3. PROVERA [Suspect]
     Dates: start: 19950101, end: 19990101
  4. ACCOLATE [Concomitant]
  5. FOLIC ACID [Concomitant]

REACTIONS (2)
  - DEEP VEIN THROMBOSIS [None]
  - PULMONARY EMBOLISM [None]
